FAERS Safety Report 8795147 (Version 2)
Quarter: 2015Q1

REPORT INFORMATION
  Report Type: Report from Study
  Country: US (occurrence: US)
  Receive Date: 20120918
  Receipt Date: 20150304
  Transmission Date: 20150721
  Serious: Yes (Death, Hospitalization)
  Sender: FDA-Public Use
  Company Number: US-ROCHE-1102334

PATIENT
  Sex: Female
  Weight: 64.1 kg

DRUGS (2)
  1. MS CONTIN [Concomitant]
     Active Substance: MORPHINE SULFATE
     Route: 065
  2. AVASTIN [Suspect]
     Active Substance: BEVACIZUMAB
     Indication: PANCREATIC CARCINOMA
     Route: 042
     Dates: end: 20080904

REACTIONS (11)
  - Disease progression [Fatal]
  - Constipation [Unknown]
  - Nausea [Unknown]
  - Muscular weakness [Unknown]
  - Back pain [Unknown]
  - Fatigue [Unknown]
  - Depression [Unknown]
  - Asthenia [Fatal]
  - Off label use [Unknown]
  - Pain [Unknown]
  - Decreased appetite [Unknown]
